FAERS Safety Report 17929426 (Version 1)
Quarter: 2020Q2

REPORT INFORMATION
  Report Type: Spontaneous
  Country: US (occurrence: US)
  Receive Date: 20200623
  Receipt Date: 20200623
  Transmission Date: 20200714
  Serious: No
  Sender: FDA-Public Use
  Company Number: US-ALLERGAN-1924191US

PATIENT
  Sex: Female

DRUGS (1)
  1. KYBELLA [Suspect]
     Active Substance: DEOXYCHOLIC ACID
     Indication: LIPOLYSIS PROCEDURE
     Dosage: 4 ML, SINGLE
     Route: 058
     Dates: start: 20190605, end: 20190605

REACTIONS (5)
  - Speech disorder [Unknown]
  - Facial paresis [Unknown]
  - Injection site discomfort [Unknown]
  - Hypoaesthesia oral [Unknown]
  - Injection site swelling [Unknown]

NARRATIVE: CASE EVENT DATE: 20190605
